FAERS Safety Report 8313764-1 (Version None)
Quarter: 2012Q2

REPORT INFORMATION
  Report Type: 
  Country: None (occurrence: None)
  Receive Date: 20120426
  Receipt Date: 20120423
  Transmission Date: 20120825
  Serious: Yes (Death)
  Sender: FDA-Public Use
  Company Number: DE-JNJFOC-20120214198

PATIENT
  Sex: Female

DRUGS (21)
  1. DOCETAXEL [Suspect]
     Route: 042
  2. DOXORUBICIN HCL [Suspect]
     Route: 040
  3. DOXORUBICIN HCL [Suspect]
     Route: 040
  4. DOXORUBICIN HCL [Suspect]
     Route: 040
  5. DOXORUBICIN HCL [Suspect]
     Indication: BREAST CANCER
     Route: 040
  6. CORTICOSTEROIDS [Concomitant]
     Indication: PREMEDICATION
     Route: 065
  7. DOXORUBICIN HCL [Suspect]
     Route: 040
  8. CYCLOPHOSPHAMIDE [Suspect]
     Route: 042
  9. DOXORUBICIN HCL [Suspect]
     Route: 040
  10. DOXORUBICIN HCL [Suspect]
     Route: 040
  11. CYCLOPHOSPHAMIDE [Suspect]
     Route: 042
  12. CYCLOPHOSPHAMIDE [Suspect]
     Route: 042
  13. DOCETAXEL [Suspect]
     Route: 042
  14. DOCETAXEL [Suspect]
     Route: 042
  15. CORTICOSTEROIDS [Concomitant]
     Route: 065
  16. CORTICOSTEROIDS [Concomitant]
     Route: 065
  17. DOXORUBICIN HCL [Suspect]
     Route: 040
  18. CYCLOPHOSPHAMIDE [Suspect]
     Indication: BREAST CANCER
     Route: 042
  19. DOCETAXEL [Suspect]
     Indication: BREAST CANCER
     Route: 042
  20. CORTICOSTEROIDS [Concomitant]
     Route: 065
  21. ANTIEMETIC [Concomitant]
     Indication: PROPHYLAXIS
     Route: 065

REACTIONS (1)
  - DEATH [None]
